FAERS Safety Report 25361144 (Version 2)
Quarter: 2025Q3

REPORT INFORMATION
  Report Type: Report from Study
  Country: CO (occurrence: CO)
  Receive Date: 20250527
  Receipt Date: 20250802
  Transmission Date: 20251021
  Serious: Yes (Other)
  Sender: ALEXION PHARMACEUTICALS
  Company Number: CO-AstraZeneca-CH-00876694A

PATIENT
  Age: 62 Year
  Sex: Male
  Weight: 65 kg

DRUGS (1)
  1. TAGRISSO [Suspect]
     Active Substance: OSIMERTINIB
     Indication: Lung neoplasm malignant
     Dates: start: 20240528

REACTIONS (1)
  - Facial paralysis [Not Recovered/Not Resolved]

NARRATIVE: CASE EVENT DATE: 20250416
